FAERS Safety Report 9595394 (Version 2)
Quarter: 2013Q4

REPORT INFORMATION
  Report Type: Spontaneous
  Country: US (occurrence: US)
  Receive Date: 20131004
  Receipt Date: 20131004
  Transmission Date: 20140711
  Serious: Yes (Other)
  Sender: FDA-Public Use
  Company Number: US-NAPPMUNDI-USA-2012-0092212

PATIENT
  Age: 48 Year
  Sex: Female

DRUGS (34)
  1. BUTRANS [Suspect]
     Indication: PAIN
     Dosage: 20 MCG/HR, WEEKLY
     Route: 062
     Dates: start: 20120731, end: 20120809
  2. OXYCODONE HYDROCHLORIDE (SIMILAR TO NDA 22-272) [Suspect]
     Indication: PAIN
     Dosage: 15 MG, TID
     Route: 048
     Dates: start: 20120731
  3. OXYCODONE HYDROCHLORIDE (SIMILAR TO NDA 22-272) [Suspect]
     Indication: BREAKTHROUGH PAIN
     Dosage: 30 MG, 6 TIMES PER DAY
     Route: 048
     Dates: start: 20120131, end: 20120610
  4. OXYCODONE HYDROCHLORIDE (SIMILAR TO NDA 22-272) [Suspect]
     Dosage: 30 MG, SEE TEXT
     Route: 048
     Dates: start: 20120610, end: 20120617
  5. OXYCODONE HYDROCHLORIDE (SIMILAR TO NDA 22-272) [Suspect]
     Dosage: 30 MG, UNK
     Route: 048
     Dates: end: 20120731
  6. MARIJUANA [Suspect]
     Indication: INCREASED APPETITE
     Dosage: 6-8 PUFFS
     Route: 055
     Dates: start: 20111026, end: 20120716
  7. COLACE [Concomitant]
     Indication: CONSTIPATION
     Dosage: 100 MG, BID
     Route: 048
     Dates: start: 20110829
  8. DESYREL [Concomitant]
     Indication: PRODUCT USED FOR UNKNOWN INDICATION
     Dosage: 150 MG, HS
     Route: 048
     Dates: start: 20110829
  9. MIRALAX                            /00754501/ [Concomitant]
     Indication: CONSTIPATION
     Dosage: 17G, DISSOLVE 17G IN LIQUID DAILY
     Route: 048
     Dates: start: 20110829
  10. CREON [Concomitant]
     Indication: PROPHYLAXIS
     Dosage: 1CAP WITH SNACKS AND 2 CAPS THREE TIMES WITH MEALS PER DAY
     Route: 048
     Dates: start: 20120531
  11. IMITREX                            /01044801/ [Concomitant]
     Indication: MIGRAINE
     Dosage: 100 MG, PRN, MAX 2 TABS IN 24 HRS
     Route: 048
     Dates: start: 20120802
  12. SYMBICORT [Concomitant]
     Indication: PRODUCT USED FOR UNKNOWN INDICATION
     Dosage: INHALE 2 PUFFS TWICE DAILY BY MOUTH
     Dates: start: 20120727
  13. ESTRADIOL [Concomitant]
     Indication: PRODUCT USED FOR UNKNOWN INDICATION
     Dosage: 1 MG, DAILY
     Route: 048
     Dates: start: 20120806
  14. PRILOSEC                           /00661201/ [Concomitant]
     Indication: PRODUCT USED FOR UNKNOWN INDICATION
     Dosage: 20 MG,
     Route: 048
     Dates: start: 20120806
  15. HYDROCHLOROTHIAZIDE [Concomitant]
     Indication: PRODUCT USED FOR UNKNOWN INDICATION
     Dosage: 25 MG, DAILY
     Route: 048
     Dates: start: 20120806
  16. LISINOPRIL [Concomitant]
     Indication: PRODUCT USED FOR UNKNOWN INDICATION
     Dosage: 40 MG, DAILY
     Route: 048
  17. ELAVIL                             /00002202/ [Concomitant]
     Indication: PRODUCT USED FOR UNKNOWN INDICATION
     Dosage: 25 MG, DAILY
     Route: 048
     Dates: start: 20120806
  18. ATIVAN [Concomitant]
     Indication: ANXIETY
     Dosage: 1 MG, Q6H PRN
     Route: 048
     Dates: start: 20120806
  19. PATANOL [Concomitant]
     Indication: PRODUCT USED FOR UNKNOWN INDICATION
     Dosage: 1 DROP, BID PRN
     Route: 047
     Dates: start: 20120806
  20. MOTRIN [Concomitant]
     Indication: PAIN
     Dosage: 800 MG, PRN,MAX 2 TABS IN 24HRS
     Route: 048
     Dates: start: 20120806
  21. FLONASE [Concomitant]
     Indication: PRODUCT USED FOR UNKNOWN INDICATION
     Dosage: 2 SPRAY, PRN
     Route: 045
     Dates: start: 20120727
  22. KLOR-CON M20 [Concomitant]
     Indication: PRODUCT USED FOR UNKNOWN INDICATION
     Dosage: 20 MEQ, DAILY
     Route: 048
     Dates: start: 20120727
  23. THEO-24 [Concomitant]
     Indication: PRODUCT USED FOR UNKNOWN INDICATION
     Dosage: 100 MG, BID
     Route: 048
     Dates: start: 20120707
  24. XYLOCAINE                          /00033401/ [Concomitant]
     Indication: PAIN
     Dosage: UNK
     Route: 061
     Dates: start: 20120727
  25. ZOFRAN                             /00955301/ [Concomitant]
     Indication: NAUSEA
     Dosage: 4 MG, Q8H PRN
     Route: 048
     Dates: start: 20120709
  26. ZOFRAN                             /00955301/ [Concomitant]
     Indication: VOMITING
  27. EFFEXOR XR [Concomitant]
     Indication: PRODUCT USED FOR UNKNOWN INDICATION
     Dosage: 75 MG, DAILY
     Route: 048
     Dates: start: 20120531
  28. EFFEXOR XR [Concomitant]
     Dosage: 150 MG, DAILY
     Route: 048
  29. ARISTOCORT                         /00031901/ [Concomitant]
     Indication: PRODUCT USED FOR UNKNOWN INDICATION
     Dosage: 0.0025 % 2 TIMES DAILY-NO SAT OR SUN
     Route: 061
     Dates: start: 20110829
  30. PHENERGAN                          /00033001/ [Concomitant]
     Indication: NAUSEA
     Dosage: 25 MG, Q6H PRN
     Route: 054
     Dates: start: 20110829
  31. PHENERGAN                          /00033001/ [Concomitant]
     Indication: VOMITING
  32. VITAMIN D3 [Concomitant]
     Indication: PRODUCT USED FOR UNKNOWN INDICATION
     Dosage: 1000 UNIT TAB ONCE DAILY
     Route: 048
     Dates: start: 20110829
  33. MULTIVITAMINS [Concomitant]
     Indication: PRODUCT USED FOR UNKNOWN INDICATION
     Dosage: 1 TAB DAILY
     Route: 048
     Dates: start: 20110829
  34. VITAMIN B-12 [Concomitant]
     Indication: PRODUCT USED FOR UNKNOWN INDICATION
     Dosage: 1000 MCG, DAILY
     Route: 048
     Dates: start: 20110829

REACTIONS (39)
  - Hallucination [Recovered/Resolved]
  - Convulsion [Unknown]
  - Drug withdrawal syndrome [Unknown]
  - Vein disorder [Unknown]
  - Bronchitis [Unknown]
  - Hypopnoea [Recovered/Resolved]
  - Urinary tract infection [Recovered/Resolved]
  - Abnormal behaviour [Recovered/Resolved]
  - Feeling jittery [Unknown]
  - Dry mouth [Recovered/Resolved]
  - Migraine [Unknown]
  - Cough [Unknown]
  - Application site pruritus [Unknown]
  - Application site irritation [Unknown]
  - Joint swelling [Unknown]
  - Application site burn [Unknown]
  - Faeces discoloured [Unknown]
  - Tongue discolouration [Unknown]
  - Back pain [Unknown]
  - Pain [Unknown]
  - Pain in extremity [Unknown]
  - Local swelling [Unknown]
  - Oropharyngeal pain [Recovered/Resolved]
  - Drug intolerance [Unknown]
  - Abdominal discomfort [Unknown]
  - Vomiting [Recovered/Resolved]
  - Rash [Unknown]
  - Nausea [Unknown]
  - Somnolence [Unknown]
  - Nervousness [Unknown]
  - Fatigue [Unknown]
  - Malaise [Unknown]
  - Feeling abnormal [Unknown]
  - Dyspnoea [Unknown]
  - Insomnia [Recovered/Resolved]
  - Dizziness [Unknown]
  - Constipation [Unknown]
  - Diarrhoea [Unknown]
  - Headache [Unknown]
